FAERS Safety Report 5002208-3 (Version None)
Quarter: 2006Q2

REPORT INFORMATION
  Report Type: 
  Country: None (occurrence: None)
  Receive Date: 20060510
  Receipt Date: 20060427
  Transmission Date: 20061013
  Serious: Yes (Other)
  Sender: FDA-Public Use
  Company Number: 2006057227

PATIENT
  Age: 78 Year
  Sex: Male
  Weight: 49 kg

DRUGS (12)
  1. ZITHROMAX [Suspect]
     Indication: PNEUMONIA
     Dosage: 500 MG (1 IN 1 D), INTRAVENOUS
     Route: 042
     Dates: start: 20060425
  2. LEVAQUIN [Suspect]
     Indication: ILL-DEFINED DISORDER
     Dosage: INTRAVENOUS
     Route: 042
  3. CLINIMIX (GENERAL NUTRIENTS) [Concomitant]
  4. ROCEPHIN [Concomitant]
  5. AGGRENOX [Concomitant]
  6. DOPAMINE HCL [Concomitant]
  7. INSULIN [Concomitant]
  8. PREVACID [Concomitant]
  9. ATIVAN [Concomitant]
  10. SOLU-MEDROL [Concomitant]
  11. MORPHINE [Concomitant]
  12. PROPOFOL [Concomitant]

REACTIONS (4)
  - EXTRAVASATION [None]
  - INFUSION SITE SWELLING [None]
  - OEDEMA PERIPHERAL [None]
  - RASH PUSTULAR [None]
